FAERS Safety Report 6083379-7 (Version None)
Quarter: 2009Q1

REPORT INFORMATION
  Report Type: 
  Country: None (occurrence: None)
  Receive Date: 20090219
  Receipt Date: 20090213
  Transmission Date: 20090719
  Serious: Yes (Hospitalization)
  Sender: FDA-Public Use
  Company Number: SE-BAYER-200830084GPV

PATIENT
  Age: 69 Year
  Sex: Male

DRUGS (16)
  1. CIPROFLOXACIN HCL [Suspect]
     Indication: RENAL STONE REMOVAL
     Route: 048
     Dates: start: 20080801, end: 20080801
  2. REMICADE [Suspect]
     Indication: COLITIS ULCERATIVE
     Route: 042
     Dates: start: 20080706, end: 20080706
  3. TRAMADOL ACTAVIS [Concomitant]
     Indication: DRUG USE FOR UNKNOWN INDICATION
     Route: 065
     Dates: end: 20080917
  4. INHIBACE [Concomitant]
     Indication: DRUG USE FOR UNKNOWN INDICATION
     Route: 065
     Dates: end: 20080917
  5. OMEPRAZOLE [Concomitant]
     Indication: DRUG USE FOR UNKNOWN INDICATION
     Route: 065
     Dates: end: 20080917
  6. BISOPROLOL [Concomitant]
     Indication: DRUG USE FOR UNKNOWN INDICATION
     Route: 065
     Dates: end: 20080917
  7. SIMVASTATIN [Concomitant]
     Indication: DRUG USE FOR UNKNOWN INDICATION
     Route: 065
     Dates: end: 20080917
  8. AZATHIOPRIN ACTAVIS [Concomitant]
     Indication: DRUG USE FOR UNKNOWN INDICATION
     Route: 065
     Dates: end: 20080917
  9. ALVEDON [Concomitant]
     Indication: DRUG USE FOR UNKNOWN INDICATION
     Route: 065
     Dates: end: 20080917
  10. PRED-CLYSMA [Concomitant]
     Indication: DRUG USE FOR UNKNOWN INDICATION
     Route: 054
     Dates: end: 20080917
  11. SOBRIL [Concomitant]
     Indication: DRUG USE FOR UNKNOWN INDICATION
     Route: 065
     Dates: end: 20080917
  12. PREDNISOLON PFIZER [Concomitant]
     Indication: DRUG USE FOR UNKNOWN INDICATION
     Route: 065
     Dates: end: 20080917
  13. TROMBYL [Concomitant]
     Indication: DRUG USE FOR UNKNOWN INDICATION
     Route: 065
     Dates: end: 20080917
  14. IMOVANE [Concomitant]
     Indication: DRUG USE FOR UNKNOWN INDICATION
     Route: 065
     Dates: end: 20080917
  15. ZINACEF [Concomitant]
     Indication: PNEUMONIA
     Route: 065
     Dates: end: 20080917
  16. ERYMAX [Concomitant]
     Indication: PNEUMONIA
     Route: 065
     Dates: end: 20080917

REACTIONS (11)
  - CEREBRAL INFARCTION [None]
  - COUGH [None]
  - DYSPNOEA [None]
  - HAEMOLYTIC URAEMIC SYNDROME [None]
  - PNEUMOCYSTIS JIROVECI INFECTION [None]
  - PULMONARY EMBOLISM [None]
  - PYREXIA [None]
  - RECTAL HAEMORRHAGE [None]
  - SPLENIC INFARCTION [None]
  - TENDON RUPTURE [None]
  - THROMBOTIC THROMBOCYTOPENIC PURPURA [None]
